FAERS Safety Report 21407299 (Version 6)
Quarter: 2022Q4

REPORT INFORMATION
  Report Type: Report from Study
  Country: CN (occurrence: CN)
  Receive Date: 20221004
  Receipt Date: 20221230
  Transmission Date: 20230113
  Serious: Yes (Hospitalization, Other)
  Sender: FDA-Public Use
  Company Number: CN-TAKEDA-2022TUS069161

PATIENT
  Age: 47 Year
  Sex: Male
  Weight: 50 kg

DRUGS (8)
  1. VEDOLIZUMAB [Suspect]
     Active Substance: VEDOLIZUMAB
     Indication: Colitis ulcerative
     Dosage: 300 MILLIGRAM
     Route: 042
     Dates: start: 20220908
  2. Lyophilizing thrombin [Concomitant]
     Indication: Inflammatory bowel disease
     Dosage: UNK UNK, QD
     Dates: start: 20220923, end: 20220927
  3. SUCRALFATE [Concomitant]
     Active Substance: SUCRALFATE
     Indication: Inflammatory bowel disease
     Dosage: 1 GRAM, QD
     Dates: start: 20220923, end: 20220927
  4. ALBUMIN HUMAN [Concomitant]
     Active Substance: ALBUMIN HUMAN
     Dosage: 20 GRAM, QD
     Route: 042
     Dates: start: 20220927, end: 20220927
  5. MESALAMINE [Concomitant]
     Active Substance: MESALAMINE
     Indication: Inflammatory bowel disease
     Dosage: 0.5 GRAM, QD
     Dates: start: 20220927, end: 20221026
  6. Polyethylene Glycol Electrolytes [Concomitant]
     Indication: Colonoscopy
     Dosage: 64 GRAM
     Route: 048
     Dates: start: 20221226, end: 20221226
  7. DIMETHICONE [Concomitant]
     Active Substance: DIMETHICONE
     Indication: Colonoscopy
     Dosage: 2 MILLILITER
     Route: 048
     Dates: start: 20221226, end: 20221226
  8. BENOXINATE HYDROCHLORIDE [Concomitant]
     Active Substance: BENOXINATE HYDROCHLORIDE
     Indication: Colonoscopy
     Dosage: 30 MILLIGRAM
     Dates: start: 20221226, end: 20221226

REACTIONS (4)
  - Hepatic failure [Recovered/Resolved]
  - Dysbiosis [Not Recovered/Not Resolved]
  - Electrolyte imbalance [Recovered/Resolved]
  - Anaemia [Recovered/Resolved]

NARRATIVE: CASE EVENT DATE: 20220923
